FAERS Safety Report 8457365-3 (Version None)
Quarter: 2012Q2

REPORT INFORMATION
  Report Type: 
  Country: None (occurrence: None)
  Receive Date: 20120621
  Receipt Date: 20120619
  Transmission Date: 20120825
  Serious: Yes (Hospitalization)
  Sender: FDA-Public Use
  Company Number: US-PFIZER INC-2012137602

PATIENT
  Sex: Male

DRUGS (5)
  1. PROZAC [Concomitant]
     Dosage: UNK
  2. REMERON [Concomitant]
     Dosage: UNK
  3. VISTARIL [Suspect]
     Dosage: 50 MG, 2 CAPS TID
     Route: 048
  4. ACETAMINOPHEN [Concomitant]
     Dosage: UNK
  5. ZYPREXA [Concomitant]
     Dosage: UNK

REACTIONS (1)
  - MAJOR DEPRESSION [None]
